FAERS Safety Report 5474975-6 (Version None)
Quarter: 2007Q3

REPORT INFORMATION
  Report Type: 
  Country: None (occurrence: None)
  Receive Date: 20070831
  Receipt Date: 20070622
  Transmission Date: 20080115
  Serious: No
  Sender: FDA-Public Use
  Company Number: 241872

PATIENT
  Age: 77 Year
  Sex: Male
  Weight: 56.7 kg

DRUGS (5)
  1. LUCENTIS [Suspect]
     Indication: MACULAR DEGENERATION
     Dates: start: 20061007, end: 20070201
  2. ASPIRIN [Concomitant]
  3. LUTEIN (LUTEIN) [Concomitant]
  4. MULTIVITAMIN (MULTIVITAMINS NOS) [Concomitant]
  5. ANTIBIOTIC (UNK INGREDIENTS) (ANTIBIOTICS NOS) [Concomitant]

REACTIONS (1)
  - URTICARIA [None]
